FAERS Safety Report 19203835 (Version 5)
Quarter: 2021Q4

REPORT INFORMATION
  Report Type: Spontaneous
  Country: US (occurrence: US)
  Receive Date: 20210503
  Receipt Date: 20211019
  Transmission Date: 20220303
  Serious: Yes (Other)
  Sender: FDA-Public Use
  Company Number: US-SA-SAC20210429000280

PATIENT
  Age: 62 Year
  Sex: Female

DRUGS (1)
  1. AUBAGIO [Suspect]
     Active Substance: TERIFLUNOMIDE
     Indication: Multiple sclerosis
     Dosage: 14 MG, QD
     Route: 048
     Dates: start: 20200225

REACTIONS (18)
  - Multiple sclerosis relapse [Not Recovered/Not Resolved]
  - Depression [Unknown]
  - Pain [Unknown]
  - Visual impairment [Unknown]
  - Cognitive disorder [Not Recovered/Not Resolved]
  - Mobility decreased [Unknown]
  - Bladder disorder [Unknown]
  - Gastrointestinal disorder [Not Recovered/Not Resolved]
  - Musculoskeletal stiffness [Unknown]
  - Fatigue [Unknown]
  - Muscle spasms [Unknown]
  - Muscle spasticity [Not Recovered/Not Resolved]
  - Sensory disturbance [Unknown]
  - Fall [Unknown]
  - Balance disorder [Not Recovered/Not Resolved]
  - Back pain [Unknown]
  - Dizziness [Not Recovered/Not Resolved]
  - Diarrhoea [Not Recovered/Not Resolved]

NARRATIVE: CASE EVENT DATE: 20210602
